FAERS Safety Report 10175829 (Version 1)
Quarter: 2014Q2

REPORT INFORMATION
  Report Type: Spontaneous
  Country: US (occurrence: US)
  Receive Date: 20140516
  Receipt Date: 20140516
  Transmission Date: 20141212
  Serious: Yes (Other)
  Sender: FDA-Public Use
  Company Number: US-ASTRAZENECA-2014SE31832

PATIENT
  Age: 61 Year
  Sex: Male

DRUGS (3)
  1. SEROQUEL [Suspect]
     Indication: MAJOR DEPRESSION
     Route: 048
  2. PROZAC [Concomitant]
     Dosage: NOT REPORTED UNK
     Route: 048
  3. CLONAZEPAM [Concomitant]
     Dosage: NOT REPORTED UNK
     Route: 048

REACTIONS (9)
  - Staphylococcal infection [Unknown]
  - Blood pressure fluctuation [Unknown]
  - Asthenia [Unknown]
  - Fatigue [Unknown]
  - Vision blurred [Unknown]
  - Syncope [Unknown]
  - Dysphagia [Unknown]
  - Lip swelling [Unknown]
  - Intentional product misuse [Not Recovered/Not Resolved]
